FAERS Safety Report 4853178-X (Version None)
Quarter: 2005Q4

REPORT INFORMATION
  Report Type: 
  Country: None (occurrence: None)
  Receive Date: 20051212
  Receipt Date: 20051129
  Transmission Date: 20060501
  Serious: Yes (Other)
  Sender: FDA-Public Use
  Company Number: 2005BI017231

PATIENT
  Age: 54 Year
  Sex: Female
  Weight: 55.7924 kg

DRUGS (5)
  1. AVONEX [Suspect]
     Indication: MULTIPLE SCLEROSIS
     Dosage: 30 UG; QW; IM
     Route: 030
     Dates: start: 19990701, end: 20030101
  2. AVONEX [Suspect]
     Indication: MULTIPLE SCLEROSIS
     Dosage: 30 UG; QW; IM
     Route: 030
     Dates: start: 20030101
  3. LEVOXYL [Concomitant]
  4. CLOZAPINE [Concomitant]
  5. EFFEXOR [Concomitant]

REACTIONS (7)
  - BREAST CANCER [None]
  - BREAST MICROCALCIFICATION [None]
  - DEPRESSION [None]
  - MUSCLE SPASMS [None]
  - OESTROGEN RECEPTOR ASSAY POSITIVE [None]
  - PROGESTERONE RECEPTOR ASSAY POSITIVE [None]
  - URINARY INCONTINENCE [None]
